FAERS Safety Report 4480122-X (Version None)
Quarter: 2004Q4

REPORT INFORMATION
  Report Type: 
  Country: None (occurrence: None)
  Receive Date: 20041018
  Receipt Date: 20040929
  Transmission Date: 20050328
  Serious: Yes (Death, Other)
  Sender: FDA-Public Use
  Company Number: 2004-DE-05069GD

PATIENT

DRUGS (1)
  1. NEVIRAPINE (NEVIRAPINE) [Suspect]
     Indication: PROPHYLAXIS AGAINST HIV INFECTION
     Dosage: ONCE

REACTIONS (2)
  - DRUG INEFFECTIVE [None]
  - HUMAN IMMUNODEFICIENCY VIRUS TRANSMISSION [None]
